FAERS Safety Report 7035445-7 (Version None)
Quarter: 2010Q4

REPORT INFORMATION
  Report Type: 
  Country: None (occurrence: None)
  Receive Date: 20101008
  Receipt Date: 20100928
  Transmission Date: 20110411
  Serious: Yes (Other)
  Sender: FDA-Public Use
  Company Number: US-PFIZER INC-2010085577

PATIENT
  Sex: Female
  Weight: 54 kg

DRUGS (3)
  1. AZITHROMYCIN [Suspect]
     Indication: OROPHARYNGEAL PAIN
     Dosage: 250 MG, 1X/DAY
     Route: 048
     Dates: start: 20100323, end: 20100328
  2. EVISTA [Concomitant]
     Dosage: UNK
  3. LEVOXYL [Concomitant]
     Dosage: UNK

REACTIONS (3)
  - ANOSMIA [None]
  - IMPAIRED WORK ABILITY [None]
  - PAROSMIA [None]
